FAERS Safety Report 8263641-X (Version None)
Quarter: 2012Q2

REPORT INFORMATION
  Report Type: 
  Country: None (occurrence: None)
  Receive Date: 20120405
  Receipt Date: 20120326
  Transmission Date: 20120825
  Serious: Yes (Hospitalization)
  Sender: FDA-Public Use
  Company Number: BE-ABBOTT-12P-013-0918900-02

PATIENT
  Sex: Male

DRUGS (6)
  1. VITAMIN B-12 [Concomitant]
     Indication: VITAMIN B12 DEFICIENCY
     Route: 030
     Dates: start: 19970601
  2. AZATHIOPRINE [Concomitant]
     Indication: CROHN'S DISEASE
  3. MINOCIN [Concomitant]
     Indication: ACNE
     Dates: start: 20080204
  4. HUMIRA [Suspect]
     Indication: CROHN'S DISEASE
     Route: 058
     Dates: start: 20071123, end: 20090106
  5. ACETAMINOPHEN [Concomitant]
     Indication: HEADACHE
     Dates: start: 20080201
  6. HUMIRA [Suspect]
     Route: 058
     Dates: start: 20100618

REACTIONS (1)
  - CROHN'S DISEASE [None]
